FAERS Safety Report 6564128-2 (Version None)
Quarter: 2010Q1

REPORT INFORMATION
  Report Type: 
  Country: None (occurrence: None)
  Receive Date: 20100131
  Receipt Date: 20100120
  Transmission Date: 20100710
  Serious: No
  Sender: FDA-Public Use
  Company Number: US-ALLERGAN-1000742US

PATIENT
  Age: 39 Year
  Sex: Female

DRUGS (3)
  1. BOTOX COSMETIC [Suspect]
     Indication: LIP SWELLING
     Dosage: 6 UNITS, SINGLE
  2. JUVEDERM ULTRA PLUS [Suspect]
     Indication: SKIN WRINKLING
     Dosage: UNK
     Dates: start: 20100119, end: 20100119
  3. LIDOCAINE [Concomitant]

REACTIONS (1)
  - LIP SWELLING [None]
